FAERS Safety Report 7207795-2 (Version None)
Quarter: 2011Q1

REPORT INFORMATION
  Report Type: 
  Country: None (occurrence: None)
  Receive Date: 20110104
  Receipt Date: 20101228
  Transmission Date: 20110831
  Serious: Yes (Other)
  Sender: FDA-Public Use
  Company Number: IT-AMGEN-ITASP2010012283

PATIENT

DRUGS (3)
  1. COLECALCIFEROL [Concomitant]
  2. LANSOPRAZOLE [Concomitant]
  3. ENBREL [Suspect]
     Indication: PSORIATIC ARTHROPATHY
     Dosage: 50 MG, WEEKLY
     Route: 058
     Dates: start: 20060109, end: 20101215

REACTIONS (2)
  - PSORIATIC ARTHROPATHY [None]
  - SKIN LESION [None]
